FAERS Safety Report 8378134-9 (Version None)
Quarter: 2012Q2

REPORT INFORMATION
  Report Type: 
  Country: None (occurrence: None)
  Receive Date: 20120522
  Receipt Date: 20120515
  Transmission Date: 20120825
  Serious: Yes (Hospitalization)
  Sender: FDA-Public Use
  Company Number: JP-BAXTER-2012BAX006040

PATIENT
  Age: 44 Year
  Sex: Male

DRUGS (3)
  1. AQUPLA [Suspect]
     Indication: TESTIS CANCER
     Route: 041
     Dates: start: 20120328, end: 20120509
  2. IFOSFAMIDE [Suspect]
     Indication: TESTIS CANCER
     Route: 041
     Dates: start: 20120328, end: 20120509
  3. TAXOL [Suspect]
     Indication: TESTIS CANCER
     Route: 041
     Dates: start: 20120328, end: 20120509

REACTIONS (1)
  - INTERSTITIAL LUNG DISEASE [None]
